FAERS Safety Report 5774485-2 (Version None)
Quarter: 2008Q2

REPORT INFORMATION
  Report Type: 
  Country: None (occurrence: None)
  Receive Date: 20080616
  Receipt Date: 20080523
  Transmission Date: 20081010
  Serious: No
  Sender: FDA-Public Use
  Company Number: US-BOEHRINGER INGELHEIM GMBH, GERMANY-2008-BP-08148BP

PATIENT
  Age: 75 Year
  Sex: Female

DRUGS (4)
  1. CATAPRES [Suspect]
     Indication: HYPERTENSION
     Route: 048
     Dates: start: 20080401
  2. TENORMIN [Concomitant]
     Indication: HYPERTENSION
  3. DIAZIDE [Concomitant]
     Indication: HYPERTENSION
  4. PAXIL [Concomitant]

REACTIONS (2)
  - DRY MOUTH [None]
  - THIRST [None]
